FAERS Safety Report 7964991-4 (Version None)
Quarter: 2011Q4

REPORT INFORMATION
  Report Type: 
  Country: None (occurrence: None)
  Receive Date: 20111208
  Receipt Date: 20111006
  Transmission Date: 20120403
  Serious: No
  Sender: FDA-Public Use
  Company Number: US-BAYER-2011-097414

PATIENT
  Age: 74 Year
  Sex: Female
  Weight: 75 kg

DRUGS (1)
  1. ALEVE (CAPLET) [Suspect]
     Indication: PAIN
     Dosage: 1 DF, QID
     Route: 048
     Dates: start: 20111005

REACTIONS (1)
  - EYE SWELLING [None]
